FAERS Safety Report 5053178-3 (Version None)
Quarter: 2006Q3

REPORT INFORMATION
  Report Type: 
  Country: None (occurrence: None)
  Receive Date: 20060711
  Receipt Date: 20060629
  Transmission Date: 20061208
  Serious: Yes (Death, Life-Threatening, Other)
  Sender: FDA-Public Use
  Company Number: HQWYE630507JUL06

PATIENT
  Age: 55 Year
  Sex: Female
  Weight: 88.2 kg

DRUGS (1)
  1. MYLOTARG [Suspect]
     Indication: ACUTE MYELOID LEUKAEMIA
     Dosage: 14.85 MG 1X PER 1 DAY; INTRAVENOUS
     Route: 042
     Dates: start: 20051004, end: 20051004

REACTIONS (7)
  - ACUTE MYELOID LEUKAEMIA [None]
  - ALANINE AMINOTRANSFERASE INCREASED [None]
  - ASPARTATE AMINOTRANSFERASE INCREASED [None]
  - BLOOD ALKALINE PHOSPHATASE INCREASED [None]
  - BLOOD LACTATE DEHYDROGENASE INCREASED [None]
  - MALIGNANT NEOPLASM PROGRESSION [None]
  - WEIGHT INCREASED [None]
